FAERS Safety Report 10041280 (Version 2)
Quarter: 2014Q2

REPORT INFORMATION
  Report Type: Spontaneous
  Country: FR (occurrence: FR)
  Receive Date: 20140327
  Receipt Date: 20140401
  Transmission Date: 20141212
  Serious: Yes (Hospitalization, Other)
  Sender: FDA-Public Use
  Company Number: FR-PFIZER INC-2014086285

PATIENT
  Age: 84 Year
  Sex: Male

DRUGS (8)
  1. CORDARONE [Suspect]
     Dosage: UNK
     Route: 048
     Dates: end: 201401
  2. INEXIUM [Concomitant]
     Dosage: UNK
  3. KEPPRA [Concomitant]
     Dosage: UNK
  4. MIANSERINE [Concomitant]
     Dosage: UNK
  5. SIMVASTATIN [Concomitant]
     Dosage: UNK
  6. KARDEGIC [Concomitant]
     Dosage: UNK
  7. VALSARTAN [Concomitant]
     Dosage: UNK
  8. METFORMIN [Concomitant]
     Dosage: UNK

REACTIONS (2)
  - Hyperthyroidism [Unknown]
  - Pulmonary sepsis [Unknown]
